FAERS Safety Report 8157427-4 (Version None)
Quarter: 2012Q1

REPORT INFORMATION
  Report Type: 
  Country: None (occurrence: None)
  Receive Date: 20120222
  Receipt Date: 20120220
  Transmission Date: 20120608
  Serious: No
  Sender: FDA-Public Use
  Company Number: US-PFIZER INC-2012044976

PATIENT
  Sex: Female
  Weight: 18.141 kg

DRUGS (3)
  1. PSEUDOEPHEDRINE HYDROCHLORIDE [Suspect]
     Indication: PYREXIA
     Dosage: UNK
  2. CHILDREN'S ADVIL [Suspect]
     Indication: PYREXIA
     Dosage: TWO TEASPOONS, 2XDAY
     Route: 048
     Dates: start: 20120201, end: 20120220
  3. VITAMIN TAB [Concomitant]
     Dosage: UNK

REACTIONS (2)
  - DRUG INEFFECTIVE [None]
  - ABDOMINAL PAIN UPPER [None]
